FAERS Safety Report 5861110-5 (Version None)
Quarter: 2008Q3

REPORT INFORMATION
  Report Type: 
  Country: None (occurrence: None)
  Receive Date: 20080827
  Receipt Date: 20080221
  Transmission Date: 20090109
  Serious: No
  Sender: FDA-Public Use
  Company Number: US-ABBOTT-08P-163-0439435-00

PATIENT
  Age: 42 Year
  Sex: Male
  Weight: 88.53 kg

DRUGS (7)
  1. COATED PDS [Suspect]
     Indication: BLOOD TRIGLYCERIDES INCREASED
     Route: 048
     Dates: start: 20071001
  2. COATED PDS [Suspect]
     Indication: BLOOD CHOLESTEROL INCREASED
  3. ROSIGLITAZONE MALEATE [Concomitant]
     Indication: GLUCOSE TOLERANCE IMPAIRED
     Route: 048
  4. EZETIMIBE [Concomitant]
     Indication: BLOOD CHOLESTEROL INCREASED
     Route: 048
  5. EZETIMIBE [Concomitant]
     Indication: BLOOD TRIGLYCERIDES INCREASED
  6. FENOFIBRATE [Concomitant]
     Indication: BLOOD CHOLESTEROL INCREASED
     Route: 048
  7. FENOFIBRATE [Concomitant]
     Indication: BLOOD TRIGLYCERIDES INCREASED

REACTIONS (6)
  - ASTHMA [None]
  - CHOKING [None]
  - ERYTHEMA [None]
  - HEART RATE INCREASED [None]
  - SKIN WARM [None]
  - VOMITING [None]
